FAERS Safety Report 16298983 (Version 1)
Quarter: 2019Q2

REPORT INFORMATION
  Report Type: Spontaneous
  Country: US (occurrence: US)
  Receive Date: 20190405
  Receipt Date: 20190405
  Transmission Date: 20190711
  Serious: Yes (Other)
  Sender: FDA-Public Use
  Company Number: None

PATIENT
  Age: 38 Year
  Sex: Male
  Weight: 70.31 kg

DRUGS (2)
  1. CLONIDINE 1MG [Suspect]
     Active Substance: CLONIDINE
     Indication: GENERALISED ANXIETY DISORDER
     Route: 048
  2. CLONIDINE 1MG [Suspect]
     Active Substance: CLONIDINE
     Indication: AGORAPHOBIA
     Route: 048

REACTIONS (2)
  - Treatment failure [None]
  - Product substitution issue [None]
